FAERS Safety Report 11146242 (Version 1)
Quarter: 2015Q2

REPORT INFORMATION
  Report Type: Report from Study
  Country: MX (occurrence: MX)
  Receive Date: 20150528
  Receipt Date: 20150528
  Transmission Date: 20150821
  Serious: Yes (Disabling, Other)
  Sender: FDA-Public Use
  Company Number: PHHY2015MX060265

PATIENT
  Age: 68 Year
  Sex: Female

DRUGS (1)
  1. CO-DIOVAN [Suspect]
     Active Substance: HYDROCHLOROTHIAZIDE\VALSARTAN
     Indication: HYPERTENSION
     Dosage: 1 DF (320/25 MG), UNK, START: 8 YEARS AGO
     Route: 065

REACTIONS (4)
  - Blindness [Unknown]
  - Infarction [Unknown]
  - Eye disorder [Unknown]
  - Cerebral artery embolism [Unknown]

NARRATIVE: CASE EVENT DATE: 20121013
